FAERS Safety Report 9145749 (Version 3)
Quarter: 2013Q2

REPORT INFORMATION
  Report Type: Spontaneous
  Country: US (occurrence: US)
  Receive Date: 20130307
  Receipt Date: 20130507
  Transmission Date: 20140414
  Serious: Yes (Hospitalization)
  Sender: FDA-Public Use
  Company Number: US-PFIZER INC-2013077345

PATIENT
  Age: 50 Year
  Sex: Male
  Weight: 54.66 kg

DRUGS (23)
  1. CAMPTOSAR [Suspect]
     Indication: COLON CANCER
     Dosage: 295 MG, CYCLIC
     Route: 042
     Dates: start: 20121226, end: 20121226
  2. FLUOROURACIL [Suspect]
     Dosage: CYCLIC
     Dates: end: 20120801
  3. OXALIPLATIN [Suspect]
     Dosage: CYCLIC
     Dates: end: 20120801
  4. FOLINIC ACID [Suspect]
     Dosage: CYCLIC
     Dates: end: 20120801
  5. OXYCODONE [Concomitant]
     Dosage: 0.5-1 ML, EVERY 2 HOURS, AS NEEDED
     Route: 048
  6. HYOSCYAMINE [Concomitant]
     Indication: MUSCLE SPASMS
     Dosage: 0.125 MG, AS NEEDED (EVERY 4 HOURS)
     Route: 060
  7. SUCRALFATE [Concomitant]
     Dosage: 10 ML, 4X/DAY
     Route: 048
  8. PROCHLORPERAZINE [Concomitant]
     Dosage: 10 MG (1 TABLET), AS NEEDED (EVERY 6 HOURS)
     Route: 048
  9. PRILOSEC [Concomitant]
     Dosage: 40 MG (1 CAPSULE), ONCE DAILY
     Route: 048
  10. ATIVAN [Concomitant]
     Dosage: 0.5 MG (1 TABLET), AS NEEDED (3X/DAY)
     Route: 048
  11. HEPARIN LOCK FLUSH [Concomitant]
     Dosage: 5 ML, AS DIRECT, EVERY 4-6 WEEKS
     Route: 042
  12. METOPROLOL SUCCINATE XL [Concomitant]
     Dosage: 25 MG, AS NEEDED (1/2 TABLET, TWICE DAILY), AS NEEDED
     Route: 048
  13. LOPRESSOR [Concomitant]
     Dosage: 5 MG, EVERY 12 HOURS
     Route: 042
  14. ZOFRAN [Concomitant]
     Dosage: 4 MG, AS NEEDED (Q 4 H)
     Route: 042
  15. HEPARIN [Concomitant]
     Dosage: 5000 IU, EVERY 12 HOURS (Q 12 H)
     Route: 058
  16. MORPHINE [Concomitant]
     Dosage: 2 MG, AS NEEDED (Q2H)
     Route: 042
  17. MORPHINE [Concomitant]
     Dosage: 2 MG, AS NEEDED (Q2H)
     Route: 030
  18. PEPCID [Concomitant]
     Dosage: 20 MG, 2X/DAY
     Route: 042
  19. ONDANSETRON [Concomitant]
     Dosage: 8 MG, AS NEEDED (EVERY 8 HOURS)
     Route: 048
  20. COLACE [Concomitant]
     Dosage: 100 MG (1 CAPSULE), AS NEEDED (TWICE DAILY)
     Route: 048
  21. OXYCODONE/PARACETAMOL [Concomitant]
     Dosage: 5MG/325MG (1-2 TABLETS), AS NEEDED (1-2 EVERY 4 HOURS)
     Route: 048
  22. SODIUM CHLORIDE [Concomitant]
     Dosage: 10-20 ML, AS DIRECT, EVERY 4-6 WEEKS
     Route: 042
  23. GLUCOSE W/ELECTROLYTES [Concomitant]
     Dosage: 125 ML/HR

REACTIONS (6)
  - Abdominal pain [Unknown]
  - Intestinal obstruction [Unknown]
  - Disease progression [Unknown]
  - Colon cancer [Unknown]
  - Nausea [Unknown]
  - Vomiting [Unknown]
